FAERS Safety Report 8838176 (Version 1)
Quarter: 2012Q4

REPORT INFORMATION
  Report Type: Spontaneous
  Country: US (occurrence: None)
  Receive Date: 20121011
  Receipt Date: 20121011
  Transmission Date: 20130627
  Serious: Yes (Life-Threatening, Disabling, Other)
  Sender: FDA-Public Use
  Company Number: None

PATIENT
  Sex: Female
  Weight: 77.11 kg

DRUGS (4)
  1. GEODON [Suspect]
     Indication: MIGRAINE
     Dosage: 40 mg once a day po
     Route: 048
     Dates: start: 20120907, end: 20120907
  2. GEODON [Suspect]
     Indication: SLEEP DISORDER
     Dosage: 40 mg once a day po
     Route: 048
     Dates: start: 20120907, end: 20120907
  3. GEODON [Suspect]
     Indication: MIGRAINE
     Dates: start: 20120921, end: 20120921
  4. GEODON [Suspect]
     Indication: SLEEP DISORDER
     Dates: start: 20120921, end: 20120921

REACTIONS (30)
  - Oedema peripheral [None]
  - Oedema peripheral [None]
  - Blister [None]
  - Dyspnoea [None]
  - Chromaturia [None]
  - Constipation [None]
  - Myalgia [None]
  - Muscular weakness [None]
  - Muscle spasms [None]
  - Chest pain [None]
  - Chest discomfort [None]
  - Hypertension [None]
  - Anxiety [None]
  - Agitation [None]
  - Restlessness [None]
  - Insomnia [None]
  - Urinary incontinence [None]
  - Fatigue [None]
  - Sensation of heaviness [None]
  - Dysphagia [None]
  - Abdominal pain upper [None]
  - Abdominal distension [None]
  - Visual impairment [None]
  - Heart rate increased [None]
  - Rectal haemorrhage [None]
  - Nausea [None]
  - Lethargy [None]
  - Confusional state [None]
  - Dysuria [None]
  - Pruritus [None]
